FAERS Safety Report 13144020 (Version 1)
Quarter: 2017Q1

REPORT INFORMATION
  Report Type: Spontaneous
  Country: US (occurrence: US)
  Receive Date: 20170124
  Receipt Date: 20170124
  Transmission Date: 20170428
  Serious: Yes (Hospitalization)
  Sender: FDA-Public Use
  Company Number: None

PATIENT
  Age: 33 Year
  Sex: Female
  Weight: 61.29 kg

DRUGS (2)
  1. SKYLA [Suspect]
     Active Substance: LEVONORGESTREL
     Dates: start: 20161020, end: 20170119
  2. DAILY VITAMIN PRENATAL ONE [Concomitant]

REACTIONS (4)
  - Uterine perforation [None]
  - Device dislocation [None]
  - Procedural pain [None]
  - Medical device site pain [None]

NARRATIVE: CASE EVENT DATE: 20161020
